FAERS Safety Report 17448734 (Version 2)
Quarter: 2020Q4

REPORT INFORMATION
  Report Type: Spontaneous
  Country: US (occurrence: US)
  Receive Date: 20200224
  Receipt Date: 20201003
  Transmission Date: 20210113
  Serious: No
  Sender: FDA-Public Use
  Company Number: US-009507513-2002USA008090

PATIENT
  Age: 49 Year
  Sex: Male

DRUGS (2)
  1. ASMANEX [Suspect]
     Active Substance: MOMETASONE FUROATE
     Dosage: 2 PUFFS ONCE A DAY
  2. ASMANEX [Suspect]
     Active Substance: MOMETASONE FUROATE
     Dosage: 2 PUFFS ONCE DAILY AT NIGHT
     Dates: start: 20200923, end: 202009

REACTIONS (7)
  - Product quality issue [Unknown]
  - Product quality issue [Unknown]
  - Poor quality device used [Unknown]
  - Poor quality device used [Unknown]
  - No adverse event [Unknown]
  - Poor quality device used [Unknown]
  - Product quality issue [Unknown]

NARRATIVE: CASE EVENT DATE: 20200217
